FAERS Safety Report 7575375-5 (Version None)
Quarter: 2011Q2

REPORT INFORMATION
  Report Type: 
  Country: None (occurrence: None)
  Receive Date: 20110627
  Receipt Date: 20110614
  Transmission Date: 20111010
  Serious: Yes (Other)
  Sender: FDA-Public Use
  Company Number: US-ELI_LILLY_AND_COMPANY-US201104002194

PATIENT
  Sex: Female

DRUGS (11)
  1. OXYCODONE HCL [Concomitant]
     Dosage: UNK, UNKNOWN
     Route: 065
  2. TRAZODONE HCL [Concomitant]
     Dosage: UNK, UNKNOWN
     Route: 065
  3. FORTEO [Suspect]
     Dosage: 20 UG, QD
     Route: 058
  4. NEURONTIN [Concomitant]
     Dosage: UNK, UNKNOWN
     Route: 065
  5. PHENYTOIN [Concomitant]
     Dosage: UNK, UNKNOWN
     Route: 065
  6. FORTEO [Suspect]
     Dosage: 20 UG, QD
     Route: 058
     Dates: start: 20110101
  7. CELEXA [Concomitant]
     Dosage: UNK, UNKNOWN
     Route: 065
  8. VERPAMIL HCL [Concomitant]
     Dosage: UNK, UNKNOWN
     Route: 065
  9. FENTANYL [Concomitant]
     Dosage: UNK, UNKNOWN
     Route: 065
  10. CELLCEPT [Concomitant]
     Dosage: UNK, UNKNOWN
     Route: 065
  11. PREDNISONE [Concomitant]
     Dosage: UNK, UNKNOWN
     Route: 065

REACTIONS (2)
  - CONVULSION [None]
  - CEREBRAL SMALL VESSEL ISCHAEMIC DISEASE [None]
